FAERS Safety Report 13776228 (Version 1)
Quarter: 2017Q3

REPORT INFORMATION
  Report Type: Spontaneous
  Country: None (occurrence: DE)
  Receive Date: 20170721
  Receipt Date: 20170721
  Transmission Date: 20171127
  Serious: No
  Sender: FDA-Public Use
  Company Number: DE-MERZ NORTH AMERICA, INC.-17MRZ-00227

PATIENT
  Sex: Female

DRUGS (2)
  1. XEOMIN [Suspect]
     Active Substance: INCOBOTULINUMTOXINA
     Indication: SKIN WRINKLING
     Dosage: (1 IN 1 TOTAL)
     Dates: start: 20161220, end: 20161220
  2. XEOMIN [Suspect]
     Active Substance: INCOBOTULINUMTOXINA
     Dosage: (1 IN 1 TOTAL)
     Dates: start: 20170131, end: 20170131

REACTIONS (1)
  - Eczema [Recovered/Resolved]
